FAERS Safety Report 9093997 (Version 1)
Quarter: 2013Q1

REPORT INFORMATION
  Report Type: Spontaneous
  Country: US (occurrence: None)
  Receive Date: 20130122
  Receipt Date: 20130122
  Transmission Date: 20140127
  Serious: Yes (Hospitalization)
  Sender: FDA-Public Use
  Company Number: 1104387

PATIENT
  Age: 69 None
  Sex: Male

DRUGS (6)
  1. ARGI [Suspect]
     Dosage: 1 PACKET PER DAY
     Route: 048
     Dates: start: 20121115, end: 20130110
  2. METFORMIN [Concomitant]
  3. INSULIN [Concomitant]
  4. COREG [Concomitant]
  5. RAMAPRIL [Concomitant]
  6. LEVIMIR [Concomitant]

REACTIONS (2)
  - Cardiac failure congestive [None]
  - Rash [None]
